FAERS Safety Report 25120329 (Version 1)
Quarter: 2025Q1

REPORT INFORMATION
  Report Type: Spontaneous
  Country: US (occurrence: None)
  Receive Date: 20250325
  Receipt Date: 20250325
  Transmission Date: 20250409
  Serious: Yes (Other)
  Sender: FDA-CTU
  Company Number: None

PATIENT
  Age: 63 Year
  Sex: Female

DRUGS (7)
  1. LENALIDOMIDE [Suspect]
     Active Substance: LENALIDOMIDE
     Indication: Plasma cell myeloma in remission
     Route: 048
     Dates: start: 20220616
  2. APPLE CIDER CAP VINEGAR [Concomitant]
  3. BIOTIN TAB 7500MCG [Concomitant]
  4. DOXYCYCLINE TAB 150 MG [Concomitant]
  5. NEOMYCIN POW SULFATE [Concomitant]
  6. VITAMIN C TAB 500MG [Concomitant]
  7. VITAMIN D3 CAP 400UNIT [Concomitant]

REACTIONS (1)
  - Therapy interrupted [None]

NARRATIVE: CASE EVENT DATE: 20250310
